FAERS Safety Report 8367367-3 (Version None)
Quarter: 2012Q2

REPORT INFORMATION
  Report Type: 
  Country: None (occurrence: None)
  Receive Date: 20120517
  Receipt Date: 20120514
  Transmission Date: 20120825
  Serious: Yes (Death, Life-Threatening, Hospitalization)
  Sender: FDA-Public Use
  Company Number: FR-PFIZER INC-2011294054

PATIENT
  Age: 64 Year
  Sex: Male

DRUGS (3)
  1. IBUPROFEN (ADVIL) [Suspect]
     Indication: PAIN
     Dosage: UNK
     Route: 048
     Dates: start: 20111112, end: 20111116
  2. VAXIGRIP [Suspect]
     Indication: INFLUENZA IMMUNISATION
     Dosage: 1 DF, SINGLE
     Route: 030
     Dates: start: 20111110, end: 20111110
  3. ACETAMINOPHEN [Suspect]
     Indication: PAIN
     Dosage: UNK
     Route: 048
     Dates: start: 20111112, end: 20111116

REACTIONS (2)
  - MULTI-ORGAN FAILURE [None]
  - NECROTISING FASCIITIS [None]
